FAERS Safety Report 8474667-5 (Version None)
Quarter: 2012Q2

REPORT INFORMATION
  Report Type: 
  Country: None (occurrence: None)
  Receive Date: 20120622
  Receipt Date: 20120614
  Transmission Date: 20120825
  Serious: Yes (Life-Threatening, Hospitalization)
  Sender: FDA-Public Use
  Company Number: AUR-APL-2012-02031

PATIENT
  Age: 42 Year
  Sex: Female

DRUGS (12)
  1. VENLAFAXINE HCL [Suspect]
     Indication: PRODUCT USED FOR UNKNOWN INDICATION
     Dosage: 150 MG (75 MG, 2 IN 1 D), ORAL
     Route: 048
  2. BENZYDAMINE (BENZYDAMINE) [Concomitant]
  3. GABAPENTIN [Suspect]
     Indication: PRODUCT USED FOR UNKNOWN INDICATION
     Dosage: 2400 MG (600 MG, 4 IN 1 D), ORAL
     Route: 048
  4. OMEPRAZOLE [Suspect]
     Indication: PRODUCT USED FOR UNKNOWN INDICATION
     Dosage: 40 MG (20 MG, 2 IN 1 D), ORAL
     Route: 048
  5. METHOTREXATE SODIUM [Suspect]
     Indication: PRODUCT USED FOR UNKNOWN INDICATION
     Dosage: 3.5714 MG (25 MG, 1 IN 1 D), ORAL
     Route: 048
  6. SCHERIPROCT (SCHERIPROCT N /00212301/) [Concomitant]
  7. HYDROXYCHLOROQUINE SULFATE [Suspect]
     Indication: RHEUMATOID ARTHRITIS
     Dosage: 400 MG (400 MG, 1 IN 1 D), ORAL
     Route: 048
  8. METRONIDAZOLE [Concomitant]
  9. NYSTATIN [Concomitant]
  10. SULFASALAZINE [Suspect]
     Indication: PRODUCT USED FOR UNKNOWN INDICATION
     Dosage: (500 MG), ORAL
     Route: 048
  11. FLOXACILLIN SODIUM [Concomitant]
  12. MICONAZOLE (MICONAZOLE) [Concomitant]

REACTIONS (7)
  - THROMBOCYTOPENIA [None]
  - INCREASED TENDENCY TO BRUISE [None]
  - ABDOMINAL PAIN [None]
  - FULL BLOOD COUNT ABNORMAL [None]
  - BLOOD DISORDER [None]
  - HAEMATEMESIS [None]
  - DIARRHOEA [None]
